FAERS Safety Report 5959723-5 (Version None)
Quarter: 2008Q4

REPORT INFORMATION
  Report Type: 
  Country: None (occurrence: None)
  Receive Date: 20081119
  Receipt Date: 20081119
  Transmission Date: 20090506
  Serious: Yes (Life-Threatening, Hospitalization)
  Sender: FDA-Public Use
  Company Number: None

PATIENT
  Age: 44 Year
  Sex: Male

DRUGS (2)
  1. CYCLOPHOSPHAMIDE [Suspect]
     Indication: MULTIPLE MYELOMA
     Dosage: 300MG/M2 IV QD X 4D
     Route: 042
     Dates: start: 20080904, end: 20080907
  2. LORAZEPAM [Concomitant]

REACTIONS (4)
  - CARDIAC TAMPONADE [None]
  - HYPOTENSION [None]
  - PERICARDIAL EFFUSION [None]
  - TACHYCARDIA [None]
